FAERS Safety Report 17657248 (Version 4)
Quarter: 2022Q4

REPORT INFORMATION
  Report Type: Report from Study
  Country: BR (occurrence: BR)
  Receive Date: 20200410
  Receipt Date: 20221017
  Transmission Date: 20230113
  Serious: Yes (Disabling, Other)
  Sender: FDA-Public Use
  Company Number: None

PATIENT
  Age: 39 Year
  Sex: Female

DRUGS (3)
  1. XOLAIR [Suspect]
     Active Substance: OMALIZUMAB
     Indication: Urticaria chronic
     Dosage: UNK
     Route: 065
     Dates: start: 20190318
  2. CETIRIZINE [Suspect]
     Active Substance: CETIRIZINE HYDROCHLORIDE
     Indication: Product used for unknown indication
     Dosage: UNK
     Route: 065
  3. BILASTINE [Concomitant]
     Active Substance: BILASTINE
     Indication: Product used for unknown indication
     Dosage: UNK
     Route: 065

REACTIONS (17)
  - Visual impairment [Not Recovered/Not Resolved]
  - Asthmatic crisis [Unknown]
  - Hypersensitivity [Recovering/Resolving]
  - Somnolence [Recovered/Resolved]
  - Rhinitis [Recovered/Resolved]
  - Cough [Recovered/Resolved]
  - Viral infection [Unknown]
  - Pain [Not Recovered/Not Resolved]
  - Abdominal pain [Not Recovered/Not Resolved]
  - Oropharyngeal discomfort [Unknown]
  - Pharyngeal inflammation [Recovered/Resolved]
  - Skin discolouration [Not Recovered/Not Resolved]
  - Fatigue [Unknown]
  - Sinusitis [Recovering/Resolving]
  - Arthralgia [Not Recovered/Not Resolved]
  - Urticaria [Not Recovered/Not Resolved]
  - Maternal exposure during breast feeding [Not Recovered/Not Resolved]

NARRATIVE: CASE EVENT DATE: 20190318
